FAERS Safety Report 5931741-2 (Version None)
Quarter: 2008Q4

REPORT INFORMATION
  Report Type: 
  Country: None (occurrence: None)
  Receive Date: 20081009
  Receipt Date: 20071203
  Transmission Date: 20090506
  Serious: Yes (Disabling, Other)
  Sender: FDA-Public Use
  Company Number: PHEH2007US15398

PATIENT
  Age: 48 Year
  Sex: Female
  Weight: 45.8 kg

DRUGS (4)
  1. ZOMETA [Suspect]
     Dosage: 4 MG Q 4-6 WEEKS, INTRAVENOUS
     Route: 042
     Dates: start: 20051008, end: 20061008
  2. THALIDOMIDE [Concomitant]
  3. DEXAMETHASONE TAB [Concomitant]
  4. VELCADE [Concomitant]

REACTIONS (2)
  - OSTEONECROSIS [None]
  - TOOTH EXTRACTION [None]
